FAERS Safety Report 24293028 (Version 1)
Quarter: 2024Q3

REPORT INFORMATION
  Report Type: Spontaneous
  Country: US (occurrence: None)
  Receive Date: 20240906
  Receipt Date: 20240906
  Transmission Date: 20241017
  Serious: No
  Sender: DOMPE FARMACEUTICI
  Company Number: US-FARMAPROD-202308-202311-3423

PATIENT
  Sex: Female

DRUGS (9)
  1. OXERVATE [Suspect]
     Active Substance: CENEGERMIN-BKBJ
     Indication: Neurotrophic keratopathy
     Route: 047
     Dates: start: 20231107
  2. FLAXSEED [Concomitant]
     Active Substance: FLAX SEED
     Dosage: (670)MG
  3. FISH OIL [Concomitant]
     Active Substance: FISH OIL
     Dosage: 100MG/160 MG  (DOCOSAHEXAENOIC ACID/EICOSAPENTAENOIC ACID)
  4. CENTRUM SILVER WOMEN [Concomitant]
  5. RESTASIS [Concomitant]
     Active Substance: CYCLOSPORINE
     Dosage: DROPERETTE
  6. FML [Concomitant]
     Active Substance: FLUOROMETHOLONE
  7. OCUVITE VITAMIN [Concomitant]
  8. REFRESH MEGA [Concomitant]
  9. SYSTANE (HYPROMELLOSE 2910 (4000 MPA.S)) [Concomitant]
     Active Substance: HYPROMELLOSE 2910 (4000 MPA.S)

REACTIONS (2)
  - Wrong technique in product usage process [Unknown]
  - Eye pain [Unknown]
